FAERS Safety Report 16712127 (Version 9)
Quarter: 2022Q3

REPORT INFORMATION
  Report Type: Report from Study
  Country: CA (occurrence: CA)
  Receive Date: 20190816
  Receipt Date: 20220707
  Transmission Date: 20221026
  Serious: Yes (Hospitalization, Other)
  Sender: FDA-Public Use
  Company Number: CA-GLAXOSMITHKLINE-CA2019AMR144576

PATIENT

DRUGS (12)
  1. ALBUTEROL SULFATE [Suspect]
     Active Substance: ALBUTEROL SULFATE
     Indication: Product used for unknown indication
     Dosage: UNK, PRN, 1-2 PUFF
  2. FLOVENT DISKUS [Suspect]
     Active Substance: FLUTICASONE PROPIONATE
     Indication: Asthma
     Dosage: 500 UG, BID
     Route: 055
  3. ADVAIR HFA [Suspect]
     Active Substance: FLUTICASONE PROPIONATE\SALMETEROL XINAFOATE
     Indication: Asthma
     Dosage: 500 UG, BID
     Route: 055
  4. NUCALA [Suspect]
     Active Substance: MEPOLIZUMAB
     Indication: Asthma
     Dosage: 100 MG, Z (MONTHLY)
     Route: 042
     Dates: start: 20191002
  5. SINGULAIR [Suspect]
     Active Substance: MONTELUKAST SODIUM
     Indication: Asthma
     Dosage: 10 MG, QD
  6. RAMIPRIL [Suspect]
     Active Substance: RAMIPRIL
     Indication: Product used for unknown indication
     Dosage: 10 MG, QD
  7. HYDROCHLOROTHIAZIDE [Suspect]
     Active Substance: HYDROCHLOROTHIAZIDE
     Indication: Product used for unknown indication
     Dosage: 25 MG, BID
  8. RABEPRAZOLE SODIUM [Suspect]
     Active Substance: RABEPRAZOLE SODIUM
     Indication: Product used for unknown indication
     Dosage: 20 MG, QD
  9. PROLIA [Suspect]
     Active Substance: DENOSUMAB
     Indication: Product used for unknown indication
     Dosage: 1 ML, UNK,1 ML SUBCUTANEOUS Q 6 MONTHS
     Route: 058
  10. PREDNISONE [Suspect]
     Active Substance: PREDNISONE
     Indication: Cough
     Dosage: 7.5 MG, UNK
     Route: 048
  11. PREDNISONE [Suspect]
     Active Substance: PREDNISONE
     Indication: Dyspnoea
     Dosage: 10 MG, QD
  12. PREDNISONE [Suspect]
     Active Substance: PREDNISONE
     Indication: Nasopharyngitis

REACTIONS (13)
  - Umbilical hernia repair [Unknown]
  - Obstructive airways disorder [Unknown]
  - Full blood count abnormal [Unknown]
  - Dyspnoea [Unknown]
  - Asthma [Unknown]
  - Sinusitis [Unknown]
  - Nasopharyngitis [Unknown]
  - Cough [Unknown]
  - Sleep disorder due to a general medical condition [Unknown]
  - Loss of personal independence in daily activities [Unknown]
  - Wheezing [Unknown]
  - Umbilical hernia [Unknown]
  - Therapeutic product effect incomplete [Unknown]

NARRATIVE: CASE EVENT DATE: 20190503
